FAERS Safety Report 9727987 (Version 1)
Quarter: 2013Q4

REPORT INFORMATION
  Report Type: Spontaneous
  Country: BR (occurrence: BR)
  Receive Date: 20131204
  Receipt Date: 20131204
  Transmission Date: 20140711
  Serious: Yes (Other)
  Sender: FDA-Public Use
  Company Number: BR-AMGEN-BRASP2013084264

PATIENT
  Age: 63 Year
  Sex: Female

DRUGS (5)
  1. MIMPARA [Suspect]
     Indication: PRODUCT USED FOR UNKNOWN INDICATION
     Dosage: 60 MG, QD
     Route: 065
     Dates: start: 2013
  2. CALCIUM [Concomitant]
     Dosage: 500 MG, SOMETIMES TAKES 2 CP 1 AND OTHER AFTER MEALS
  3. B COMPLEX                          /00212701/ [Concomitant]
     Dosage: 1 TABLET  AFTER THE LUNCH
  4. FOLIC ACID [Concomitant]
     Dosage: UNK UNK, QD AFTER THE LUNCH
  5. CARVEDILOL [Concomitant]
     Dosage: 3.75 MG, Q12H

REACTIONS (1)
  - Blood parathyroid hormone abnormal [Unknown]
